FAERS Safety Report 8959551 (Version 1)
Quarter: 2012Q4

REPORT INFORMATION
  Report Type: 
  Country: DE (occurrence: DE)
  Receive Date: 20121212
  Receipt Date: 20121212
  Transmission Date: 20130627
  Serious: Yes (Other)
  Sender: FDA-Public Use
  Company Number: DE-ROCHE-1167571

PATIENT
  Sex: Female

DRUGS (1)
  1. XELODA [Suspect]
     Indication: LEUKAEMIA
     Route: 065

REACTIONS (1)
  - Osteonecrosis [Unknown]
